FAERS Safety Report 6409962-4 (Version None)
Quarter: 2009Q4

REPORT INFORMATION
  Report Type: 
  Country: None (occurrence: None)
  Receive Date: 20091020
  Receipt Date: 20091020
  Transmission Date: 20100525
  Serious: Yes (Hospitalization, Disabling)
  Sender: FDA-Public Use
  Company Number: None

PATIENT
  Sex: Female
  Weight: 115.6672 kg

DRUGS (2)
  1. DEPAKOTE ER [Suspect]
     Indication: REPETITIVE SPEECH
     Dosage: 4 TABLETS AT BEDTIME
     Dates: start: 20090903, end: 20091018
  2. RISPERIDONE [Suspect]
     Dosage: 1 TABLET TWICE A DAY
     Dates: start: 20090903

REACTIONS (2)
  - OEDEMA PERIPHERAL [None]
  - SWELLING [None]
